FAERS Safety Report 6998599-4 (Version None)
Quarter: 2010Q3

REPORT INFORMATION
  Report Type: 
  Country: None (occurrence: None)
  Receive Date: 20100920
  Receipt Date: 20070430
  Transmission Date: 20110219
  Serious: Yes (Other)
  Sender: FDA-Public Use
  Company Number: US-ASTRAZENECA-2006UW26252

PATIENT
  Age: 476 Month
  Sex: Male
  Weight: 138.8 kg

DRUGS (14)
  1. SEROQUEL [Suspect]
     Indication: DEPRESSION
     Dosage: 100 AND 200 MG USED
     Route: 048
     Dates: start: 19970101
  2. SEROQUEL [Suspect]
     Indication: SLEEP DISORDER
     Dosage: 100 AND 200 MG USED
     Route: 048
     Dates: start: 19970101
  3. SEROQUEL [Suspect]
     Route: 048
     Dates: start: 20000204
  4. SEROQUEL [Suspect]
     Route: 048
     Dates: start: 20000204
  5. ABILIFY [Concomitant]
     Dosage: 10 MG AND 15 MG
  6. CLOZARIL [Concomitant]
  7. HALDOL [Concomitant]
     Dosage: 10 MG
  8. RISPERDAL [Concomitant]
     Dosage: 2 MG
  9. ZYPREXA [Concomitant]
     Dosage: 25 MG
  10. ZYPREXA [Concomitant]
     Dates: start: 20000204
  11. ALTACE [Concomitant]
     Dosage: 5-10 MG
     Route: 048
     Dates: start: 19991210
  12. AVANDIA [Concomitant]
     Route: 048
     Dates: start: 20010510
  13. TENORETIC 100 [Concomitant]
     Dosage: 25-50 MG
     Route: 048
     Dates: start: 20040113
  14. DEPAKOTE [Concomitant]
     Dates: start: 19960101

REACTIONS (4)
  - DIABETES MELLITUS [None]
  - DIABETIC KETOACIDOSIS [None]
  - TARDIVE DYSKINESIA [None]
  - TYPE 2 DIABETES MELLITUS [None]
